FAERS Safety Report 6896412-7 (Version None)
Quarter: 2010Q3

REPORT INFORMATION
  Report Type: 
  Country: None (occurrence: None)
  Receive Date: 20100802
  Receipt Date: 20090218
  Transmission Date: 20110219
  Serious: No
  Sender: FDA-Public Use
  Company Number: US-PFIZER INC-2009171969

PATIENT
  Sex: Male
  Weight: 109 kg

DRUGS (12)
  1. CAVERJECT [Suspect]
     Indication: ERECTILE DYSFUNCTION
     Dosage: 35 UG, AS NEEDED
  2. DIGOXIN [Concomitant]
     Dosage: UNK
  3. TOPROL-XL [Concomitant]
     Dosage: UNK
  4. LIPITOR [Concomitant]
     Dosage: UNK
  5. AMARYL [Concomitant]
     Dosage: UNK
  6. FLOMAX [Concomitant]
     Dosage: UNK
  7. VESICARE [Concomitant]
     Dosage: UNK
  8. BENICAR [Concomitant]
     Dosage: UNK
  9. FLEXERIL [Concomitant]
     Dosage: UNK
  10. MOBIC [Concomitant]
     Dosage: UNK
  11. ARICEPT [Concomitant]
  12. METFORMIN HYDROCHLORIDE/SITAGLIPTIN [Concomitant]
     Dosage: UNK

REACTIONS (1)
  - ERECTILE DYSFUNCTION [None]
